FAERS Safety Report 4382459-1 (Version None)
Quarter: 2004Q2

REPORT INFORMATION
  Report Type: 
  Country: None (occurrence: None)
  Receive Date: 20040617
  Receipt Date: 20040602
  Transmission Date: 20050107
  Serious: Yes (Hospitalization, Disabling)
  Sender: FDA-Public Use
  Company Number: 2004AP01943

PATIENT
  Age: 62 Year
  Sex: Female
  Weight: 54.3 kg

DRUGS (11)
  1. IRESSA [Suspect]
     Indication: NON-SMALL CELL LUNG CANCER
     Dosage: 250 MG DAILY PO
     Route: 048
     Dates: start: 20020611, end: 20021017
  2. IRESSA [Suspect]
     Indication: NON-SMALL CELL LUNG CANCER
     Dosage: 250 MG DAILY PO
     Route: 048
     Dates: start: 20021025, end: 20040220
  3. IRESSA [Suspect]
     Indication: NON-SMALL CELL LUNG CANCER
     Dosage: 250 MG DAILY PO
     Route: 048
     Dates: start: 20040227, end: 20040317
  4. IRESSA [Suspect]
     Indication: NON-SMALL CELL LUNG CANCER
     Dosage: 250 MG DAILY PO
     Route: 048
     Dates: start: 20040407, end: 20040416
  5. IRESSA [Suspect]
     Indication: NON-SMALL CELL LUNG CANCER
     Dosage: 250 MG DAILY PO
     Route: 048
     Dates: start: 20040420
  6. MGO [Concomitant]
  7. CELEBREX [Concomitant]
  8. GEMCITABINE [Concomitant]
  9. CISPLATIN [Concomitant]
  10. PACLITAXEL [Concomitant]
  11. RADIOTHERAPY [Concomitant]

REACTIONS (11)
  - ADENOCARCINOMA [None]
  - ARACHNOID CYST [None]
  - CEREBROSPINAL FLUID LEAKAGE [None]
  - IMPAIRED HEALING [None]
  - METASTASES TO CENTRAL NERVOUS SYSTEM [None]
  - MUSCLE DISORDER [None]
  - MYELITIS TRANSVERSE [None]
  - POST PROCEDURAL COMPLICATION [None]
  - SENSORY LOSS [None]
  - SPINAL CORD INFARCTION [None]
  - URINARY INCONTINENCE [None]
